FAERS Safety Report 11748261 (Version 1)
Quarter: 2015Q4

REPORT INFORMATION
  Report Type: Spontaneous
  Country: US (occurrence: US)
  Receive Date: 20151117
  Receipt Date: 20151117
  Transmission Date: 20160304
  Serious: No
  Sender: FDA-Public Use
  Company Number: US-ASTRAZENECA-2015SF08697

PATIENT
  Age: 715 Month
  Sex: Female
  Weight: 76.7 kg

DRUGS (2)
  1. TUDORZA PRESSAIR [Suspect]
     Active Substance: ACLIDINIUM BROMIDE
     Indication: CHRONIC OBSTRUCTIVE PULMONARY DISEASE
     Dosage: ONE INHALATION TWICE A DAY
     Route: 055
     Dates: start: 201511
  2. TUDORZA PRESSAIR [Suspect]
     Active Substance: ACLIDINIUM BROMIDE
     Indication: CHRONIC OBSTRUCTIVE PULMONARY DISEASE
     Dosage: ONE INHALATION TWICE A DAY
     Route: 055
     Dates: start: 201508

REACTIONS (5)
  - Dyspnoea [Unknown]
  - Drug dose omission [Unknown]
  - Stress [Unknown]
  - Dysgeusia [Unknown]
  - Product quality issue [Unknown]

NARRATIVE: CASE EVENT DATE: 201508
